FAERS Safety Report 10551007 (Version 1)
Quarter: 2014Q4

REPORT INFORMATION
  Report Type: Spontaneous
  Country: US (occurrence: None)
  Receive Date: 20141020
  Receipt Date: 20141020
  Transmission Date: 20150529
  Serious: No
  Sender: FDA-Public Use
  Company Number: AEGR000612

PATIENT
  Age: 52 Year
  Sex: Female
  Weight: 84.4 kg

DRUGS (6)
  1. JUXTAPID [Suspect]
     Active Substance: LOMITAPIDE MESYLATE
     Indication: TYPE IIA HYPERLIPIDAEMIA
     Route: 048
     Dates: start: 201405
  2. PLAVIX [Concomitant]
     Active Substance: CLOPIDOGREL BISULFATE
  3. MELATONIN [Concomitant]
     Active Substance: MELATONIN
  4. LOSARTAN (LOSARTAN POTASSIUM) [Concomitant]
  5. NEXIUM (ESOMEPRAZOLE MADNESIUM) [Concomitant]
  6. ASPIRIN. [Concomitant]
     Active Substance: ASPIRIN

REACTIONS (5)
  - Cough [None]
  - Nasopharyngitis [None]
  - Pyrexia [None]
  - Ear infection [None]
  - Sinusitis [None]

NARRATIVE: CASE EVENT DATE: 201407
